FAERS Safety Report 23084444 (Version 1)
Quarter: 2023Q4

REPORT INFORMATION
  Report Type: Report from Study
  Country: IT (occurrence: IT)
  Receive Date: 20231019
  Receipt Date: 20231019
  Transmission Date: 20240109
  Serious: Yes (Other)
  Sender: FDA-Public Use
  Company Number: None

PATIENT
  Age: 60 Year
  Sex: Female

DRUGS (3)
  1. DOXORUBICIN [Suspect]
     Active Substance: DOXORUBICIN
     Indication: Thymoma
     Dosage: DOXORUBICINA TEVA
     Route: 065
     Dates: start: 20230807, end: 20230807
  2. CISPLATIN [Suspect]
     Active Substance: CISPLATIN
     Indication: Thymoma
     Dosage: CISPLATINO ACCORD HEALTHCARE ITALIA
     Route: 065
     Dates: start: 20230807, end: 20230807
  3. CYCLOPHOSPHAMIDE [Suspect]
     Active Substance: CYCLOPHOSPHAMIDE
     Indication: Thymoma
     Route: 065
     Dates: start: 20230807, end: 20230807

REACTIONS (2)
  - Anaemia [Recovering/Resolving]
  - Off label use [Recovering/Resolving]

NARRATIVE: CASE EVENT DATE: 20230807
